FAERS Safety Report 12161038 (Version 1)
Quarter: 2016Q1

REPORT INFORMATION
  Report Type: Report from Study
  Country: US (occurrence: US)
  Receive Date: 20160308
  Receipt Date: 20160308
  Transmission Date: 20160526
  Serious: Yes (Other)
  Sender: FDA-Public Use
  Company Number: US-DSJP-DSU-2015-138733

PATIENT

DRUGS (1)
  1. EDOXABAN [Suspect]
     Active Substance: EDOXABAN TOSYLATE
     Indication: ATRIAL FIBRILLATION
     Dosage: UNK
     Dates: start: 201509

REACTIONS (7)
  - Coagulation time prolonged [Unknown]
  - Inappropriate schedule of drug administration [Unknown]
  - Stress [Unknown]
  - Atrial fibrillation [Unknown]
  - Laceration [Unknown]
  - Haemorrhage [Unknown]
  - Ejection fraction decreased [Unknown]

NARRATIVE: CASE EVENT DATE: 2015
